FAERS Safety Report 25729767 (Version 1)
Quarter: 2025Q3

REPORT INFORMATION
  Report Type: Spontaneous
  Country: US (occurrence: None)
  Receive Date: 20250826
  Receipt Date: 20250826
  Transmission Date: 20251021
  Serious: Yes (Other)
  Sender: FDA-CTU
  Company Number: None

PATIENT
  Age: 59 Year
  Sex: Female
  Weight: 83.5 kg

DRUGS (8)
  1. REZDIFFRA [Suspect]
     Active Substance: RESMETIROM
     Indication: Metabolic dysfunction-associated steatohepatitis
     Dosage: FREQUENCY : DAILY;?
     Route: 048
     Dates: start: 20241210, end: 20250719
  2. ASPIRIN [Concomitant]
     Active Substance: ASPIRIN
  3. CALTRATE [Concomitant]
     Active Substance: CALCIUM CARBONATE
  4. GABAPENTIN [Concomitant]
     Active Substance: GABAPENTIN
  5. HYDROCHLOROTHIAZIDE\LISINOPRIL [Concomitant]
     Active Substance: HYDROCHLOROTHIAZIDE\LISINOPRIL
  6. MAGNESIUM OXIDE [Concomitant]
     Active Substance: MAGNESIUM OXIDE
  7. METOPROLOL SUCCINATE [Concomitant]
     Active Substance: METOPROLOL SUCCINATE
  8. KCI [Concomitant]

REACTIONS (2)
  - Pruritus [None]
  - Ulcer [None]

NARRATIVE: CASE EVENT DATE: 20250719
